FAERS Safety Report 21041632 (Version 1)
Quarter: 2022Q3

REPORT INFORMATION
  Report Type: Other
  Country: HU (occurrence: None)
  Receive Date: 20220705
  Receipt Date: 20220705
  Transmission Date: 20221027
  Serious: Yes (Other)
  Sender: FDA-Public Use
  Company Number: HU-ROCHE-3128643

PATIENT
  Age: 25 Year
  Sex: Female

DRUGS (3)
  1. BEVACIZUMAB [Suspect]
     Active Substance: BEVACIZUMAB
     Indication: Angiosarcoma
     Route: 042
  2. CARBOPLATIN [Concomitant]
     Active Substance: CARBOPLATIN
     Indication: Angiosarcoma
  3. PACLITAXEL [Concomitant]
     Active Substance: PACLITAXEL
     Indication: Angiosarcoma

REACTIONS (2)
  - Pulmonary embolism [Unknown]
  - Off label use [Unknown]
